FAERS Safety Report 20629616 (Version 12)
Quarter: 2024Q2

REPORT INFORMATION
  Report Type: Report from Study
  Country: DE (occurrence: DE)
  Receive Date: 20220323
  Receipt Date: 20240410
  Transmission Date: 20240716
  Serious: Yes (Death, Life-Threatening, Hospitalization)
  Sender: FDA-Public Use
  Company Number: DE-BoehringerIngelheim-2022-BI-160617

PATIENT
  Age: 66 Year
  Sex: Female

DRUGS (16)
  1. NINTEDANIB [Suspect]
     Active Substance: NINTEDANIB
     Indication: Lung adenocarcinoma
     Route: 048
     Dates: start: 20220215, end: 20221221
  2. DOCETAXEL [Suspect]
     Active Substance: DOCETAXEL\DOCETAXEL ANHYDROUS
     Indication: Lung adenocarcinoma
     Dosage: FORM OF ADMIN- LIQUID 75 MG/M2 BSA
     Route: 042
     Dates: start: 20220214, end: 20221201
  3. BISOPROLOL [Concomitant]
     Active Substance: BISOPROLOL\BISOPROLOL FUMARATE
     Indication: Product used for unknown indication
  4. TORSEMIDE [Concomitant]
     Active Substance: TORSEMIDE
     Indication: Product used for unknown indication
  5. Eplerenon 50 mg [Concomitant]
     Indication: Product used for unknown indication
  6. Perenterol 250 mg [Concomitant]
     Indication: Product used for unknown indication
  7. Magnesium 400 mg [Concomitant]
     Indication: Product used for unknown indication
  8. CITALOPRAM [Concomitant]
     Active Substance: CITALOPRAM\CITALOPRAM HYDROBROMIDE
     Indication: Product used for unknown indication
  9. Bretaris 40mg [Concomitant]
     Indication: Product used for unknown indication
  10. FOSTER [Concomitant]
     Active Substance: BECLOMETHASONE\FORMOTEROL
     Indication: Product used for unknown indication
  11. Tilidin 50/4 mg [Concomitant]
     Indication: Product used for unknown indication
     Dosage: STRENGTH: 50/4 MG
  12. Oxygesic 5 mg [Concomitant]
     Indication: Product used for unknown indication
  13. ASPIRIN [Concomitant]
     Active Substance: ASPIRIN
     Indication: Product used for unknown indication
  14. Folsaure 0.4 mg [Concomitant]
     Indication: Product used for unknown indication
  15. calcium/vit D [Concomitant]
     Indication: Product used for unknown indication
  16. METAMIZOL [Concomitant]
     Active Substance: METAMIZOLE SODIUM
     Indication: Product used for unknown indication

REACTIONS (7)
  - Asthenia [Fatal]
  - Renal failure [Recovered/Resolved]
  - Decreased appetite [Not Recovered/Not Resolved]
  - Alanine aminotransferase increased [Recovered/Resolved]
  - Aspartate aminotransferase increased [Not Recovered/Not Resolved]
  - Aspartate aminotransferase increased [Recovered/Resolved]
  - Alanine aminotransferase increased [Recovered/Resolved]

NARRATIVE: CASE EVENT DATE: 20220222
